FAERS Safety Report 9520713 (Version 1)
Quarter: 2013Q3

REPORT INFORMATION
  Report Type: Spontaneous
  Country: GB (occurrence: None)
  Receive Date: 20130911
  Receipt Date: 20130911
  Transmission Date: 20140515
  Serious: Yes (Hospitalization)
  Sender: FDA-Public Use
  Company Number: AUR-APL-2013-07433

PATIENT
  Age: 84 Year
  Sex: Female

DRUGS (7)
  1. CLOPIDOGREL [Suspect]
     Indication: PRODUCT USED FOR UNKNOWN INDICATION
  2. ANADIN (PARACETAMOL) [Suspect]
     Indication: PRODUCT USED FOR UNKNOWN INDICATION
  3. XARELTO [Suspect]
     Indication: ATRIAL FIBRILLATION
     Dosage: 20 MG (20 MG, 1 IN 1 D) , ORAL
     Route: 048
     Dates: start: 20130719, end: 20130729
  4. DILTIAZEM [Concomitant]
  5. LISINOPRIL (LISINOPRIL) [Concomitant]
  6. SERETIDE (SERETIDE) [Concomitant]
  7. TIOTROPIUM (TIOTROPIUM) [Concomitant]

REACTIONS (3)
  - Gastrointestinal haemorrhage [None]
  - Haemoglobin decreased [None]
  - Medication error [None]
